FAERS Safety Report 25072893 (Version 1)
Quarter: 2025Q1

REPORT INFORMATION
  Report Type: Spontaneous
  Country: US (occurrence: US)
  Receive Date: 20250313
  Receipt Date: 20250313
  Transmission Date: 20250409
  Serious: Yes (Hospitalization, Other)
  Sender: CSL BEHRING
  Company Number: US-BEH-2025198254

PATIENT
  Age: 34 Year
  Sex: Female

DRUGS (3)
  1. PRIVIGEN [Suspect]
     Active Substance: HUMAN IMMUNOGLOBULIN G
     Indication: Combined immunodeficiency
     Dosage: 10 G, QMT (EVERY 4 WEEKS) (STRENGTH: 10GM/VL)
     Route: 042
     Dates: start: 201911
  2. PRIVIGEN [Suspect]
     Active Substance: HUMAN IMMUNOGLOBULIN G
     Dosage: 5 G, QMT (EVERY 4 WEEKS) (STRENGTH: 5GM/VL)
     Route: 042
     Dates: start: 201911
  3. PRIVIGEN [Suspect]
     Active Substance: HUMAN IMMUNOGLOBULIN G
     Dosage: 5 G, QMT (EVERY 4 WEEKS) (STRENGTH: 20GM/VL)
     Route: 042
     Dates: start: 201911

REACTIONS (1)
  - Pneumonia [Not Recovered/Not Resolved]

NARRATIVE: CASE EVENT DATE: 20250225
